FAERS Safety Report 8552093-8 (Version None)
Quarter: 2012Q3

REPORT INFORMATION
  Report Type: 
  Country: None (occurrence: None)
  Receive Date: 20120731
  Receipt Date: 20120723
  Transmission Date: 20120928
  Serious: No
  Sender: FDA-Public Use
  Company Number: US-BIOGENIDEC-2012BI017015

PATIENT
  Sex: Female

DRUGS (3)
  1. XANAX [Concomitant]
     Indication: ANXIETY
  2. TYSABRI [Suspect]
     Indication: MULTIPLE SCLEROSIS
     Route: 042
     Dates: start: 20120502
  3. XANAX [Concomitant]
     Indication: INITIAL INSOMNIA

REACTIONS (19)
  - FATIGUE [None]
  - FALL [None]
  - SPEECH DISORDER [None]
  - TEMPERATURE INTOLERANCE [None]
  - HYPERTHYROIDISM [None]
  - MULTIPLE SCLEROSIS [None]
  - VISUAL IMPAIRMENT [None]
  - MEMORY IMPAIRMENT [None]
  - DRUG INEFFECTIVE [None]
  - GAIT DISTURBANCE [None]
  - BALANCE DISORDER [None]
  - VISION BLURRED [None]
  - PAIN IN EXTREMITY [None]
  - ANXIETY [None]
  - STRESS [None]
  - INITIAL INSOMNIA [None]
  - FEAR [None]
  - HEADACHE [None]
  - DYSARTHRIA [None]
